FAERS Safety Report 10045693 (Version 1)
Quarter: 2014Q1

REPORT INFORMATION
  Report Type: Spontaneous
  Country: US (occurrence: None)
  Receive Date: 20140306
  Receipt Date: 20140306
  Transmission Date: 20141002
  Serious: Yes (Life-Threatening)
  Sender: FDA-Public Use
  Company Number: 163-21880-13060007

PATIENT
  Age: 71 Year
  Sex: Male

DRUGS (9)
  1. REVLIMID (LENALIDOMIDE) (CAPSULES) [Suspect]
     Indication: PLASMA CELL MYELOMA
     Dosage: 21 IN 21 D
     Route: 048
     Dates: start: 20130409
  2. ATIVAN (LORAZEPAM) (UNKNOW) [Concomitant]
  3. BACTRIM DS (BACTRIM) [Concomitant]
  4. CALCIUM (CALCIUM) [Concomitant]
  5. CITALOPRAM HYDROBROMIDE (CITALOPRAM HYDROBROMIDE) [Concomitant]
  6. FISH OIL (FISH OIL) [Concomitant]
  7. GABAPENTIN (GABAPENTIN) [Concomitant]
  8. MULTIVITAMINS  (MULTIVITAMINS) [Concomitant]
  9. OMEPRAZOLE (OMEPRAZOLE) [Concomitant]

REACTIONS (1)
  - Thrombosis [None]
